FAERS Safety Report 24313520 (Version 12)
Quarter: 2025Q1

REPORT INFORMATION
  Report Type: Report from Study
  Country: CA (occurrence: CA)
  Receive Date: 20240912
  Receipt Date: 20250104
  Transmission Date: 20250408
  Serious: Yes (Hospitalization, Other)
  Sender: GILEAD
  Company Number: CA-GLAXOSMITHKLINE-CA2023AMR067908

PATIENT
  Age: 51 Year
  Sex: Female

DRUGS (3)
  1. AMBRISENTAN [Suspect]
     Active Substance: AMBRISENTAN
     Indication: Pulmonary arterial hypertension
     Dosage: 10 MG, QD
     Route: 048
     Dates: start: 20180201
  2. SEMAGLUTIDE [Suspect]
     Active Substance: SEMAGLUTIDE
     Indication: Product used for unknown indication
     Route: 065
  3. MOUNJARO [Suspect]
     Active Substance: TIRZEPATIDE
     Indication: Product used for unknown indication
     Route: 065

REACTIONS (23)
  - Nausea [Unknown]
  - Constipation [Unknown]
  - Vomiting [Unknown]
  - Oedema [Recovering/Resolving]
  - Cyclic vomiting syndrome [Not Recovered/Not Resolved]
  - Pneumonia [Unknown]
  - Dyspepsia [Unknown]
  - Blood pressure increased [Unknown]
  - Respiratory tract congestion [Unknown]
  - Dyspnoea [Unknown]
  - Illness [Unknown]
  - Malaise [Unknown]
  - Eye infection [Unknown]
  - Bronchitis [Unknown]
  - Increased bronchial secretion [Unknown]
  - Cough [Unknown]
  - COVID-19 [Recovering/Resolving]
  - Influenza [Recovering/Resolving]
  - Exposure during pregnancy [Unknown]
  - Product dose omission issue [Unknown]
  - Pain in extremity [Unknown]
  - Abdominal pain [Unknown]
  - Muscle spasms [Unknown]

NARRATIVE: CASE EVENT DATE: 20230201
